FAERS Safety Report 13568866 (Version 2)
Quarter: 2017Q2

REPORT INFORMATION
  Report Type: Spontaneous
  Country: IT (occurrence: IT)
  Receive Date: 20170522
  Receipt Date: 20170522
  Transmission Date: 20170830
  Serious: Yes (Other)
  Sender: FDA-Public Use
  Company Number: IT-BRISTOL-MYERS SQUIBB COMPANY-BMS-2017-042262

PATIENT

DRUGS (2)
  1. NIVOLUMAB [Suspect]
     Active Substance: NIVOLUMAB
     Indication: HODGKIN^S DISEASE
     Route: 042
  2. BRENTUXIMAB VEDOTIN [Concomitant]
     Active Substance: BRENTUXIMAB VEDOTIN
     Indication: PRODUCT USED FOR UNKNOWN INDICATION
     Route: 065

REACTIONS (14)
  - Hyperthyroidism [Unknown]
  - Fatigue [Unknown]
  - Pyrexia [Unknown]
  - Hypothyroidism [Unknown]
  - Hepatitis [Unknown]
  - Transaminases increased [Unknown]
  - Thyroiditis [Unknown]
  - Colitis [Unknown]
  - Infusion related reaction [Unknown]
  - Pneumonitis [Unknown]
  - Cytopenia [Unknown]
  - Rash [Unknown]
  - Upper respiratory tract infection [Unknown]
  - Cough [Unknown]
